FAERS Safety Report 12616804 (Version 3)
Quarter: 2016Q3

REPORT INFORMATION
  Report Type: Spontaneous
  Country: DK (occurrence: DK)
  Receive Date: 20160802
  Receipt Date: 20160819
  Transmission Date: 20161109
  Serious: Yes (Hospitalization)
  Sender: FDA-Public Use
  Company Number: DK-ASTRAZENECA-2016SE82053

PATIENT
  Sex: Female

DRUGS (1)
  1. PULMICORT TURBUHALER [Suspect]
     Active Substance: BUDESONIDE
     Dosage: 400.0UG UNKNOWN
     Route: 055

REACTIONS (6)
  - Seasonal allergy [Unknown]
  - Drug ineffective [Unknown]
  - Thrombosis [Unknown]
  - Dyspnoea [Unknown]
  - Cough [Unknown]
  - Circumstance or information capable of leading to medication error [Unknown]
